FAERS Safety Report 9220808 (Version 1)
Quarter: 2013Q2

REPORT INFORMATION
  Report Type: Spontaneous
  Country: US (occurrence: US)
  Receive Date: 20130409
  Receipt Date: 20130409
  Transmission Date: 20140414
  Serious: Yes (Hospitalization, Other)
  Sender: FDA-Public Use
  Company Number: US-ELI_LILLY_AND_COMPANY-US201303010173

PATIENT
  Sex: Female

DRUGS (9)
  1. CYMBALTA [Suspect]
     Indication: NEUROPATHY PERIPHERAL
     Dosage: 60 MG, UNKNOWN
     Dates: start: 2008, end: 2008
  2. CYMBALTA [Suspect]
     Dosage: 60 MG, QOD
  3. CYMBALTA [Suspect]
     Dosage: 30 MG, QOD
  4. CYMBALTA [Suspect]
     Dosage: 30 MG, QD
  5. CYMBALTA [Suspect]
     Dosage: 30 MG, QOD
  6. CRESTOR [Concomitant]
     Dosage: UNK, UNKNOWN
  7. PREVACID [Concomitant]
     Dosage: UNK, UNKNOWN
  8. DILTIAZEM [Concomitant]
     Dosage: UNK, UNKNOWN
  9. NEURONTIN [Concomitant]
     Dosage: UNK, UNKNOWN

REACTIONS (15)
  - Suicidal behaviour [Recovered/Resolved]
  - Malaise [Recovered/Resolved]
  - Gait disturbance [Recovered/Resolved]
  - Muscle spasms [Recovered/Resolved]
  - Crying [Recovered/Resolved]
  - Abdominal pain [Unknown]
  - Cold sweat [Unknown]
  - Feeling drunk [Recovering/Resolving]
  - Off label use [Unknown]
  - Agitation [Recovered/Resolved]
  - Dizziness [Unknown]
  - Fatigue [Recovered/Resolved]
  - Nausea [Unknown]
  - Diarrhoea [Unknown]
  - Drug withdrawal syndrome [Unknown]
